FAERS Safety Report 5072367-5 (Version None)
Quarter: 2006Q3

REPORT INFORMATION
  Report Type: 
  Country: None (occurrence: None)
  Receive Date: 20060710
  Receipt Date: 20051130
  Transmission Date: 20061208
  Serious: Yes (Hospitalization)
  Sender: FDA-Public Use
  Company Number: PHEH2005US11696

PATIENT
  Age: 62 Year
  Sex: Female

DRUGS (10)
  1. GLEEVEC [Suspect]
     Indication: CHRONIC MYELOID LEUKAEMIA
     Dosage: 400 MG, QD, ORAL
     Route: 048
     Dates: start: 20050928, end: 20051107
  2. ALLOPURINOL [Suspect]
     Indication: HYPERURICAEMIA
     Dosage: 300 MG, QD, ORAL
     Route: 047
     Dates: start: 20051004, end: 20051019
  3. AGRYLIN [Concomitant]
  4. ZANTAC [Concomitant]
  5. PROTONIX [Concomitant]
  6. AMBIEN [Concomitant]
  7. OXYCODONE HCL [Concomitant]
  8. ALDACTONE [Concomitant]
  9. PREMARIN [Concomitant]
  10. OSCAL 500-D (CALCIUM, COLECALCIFEROL) [Concomitant]

REACTIONS (5)
  - COMPUTERISED TOMOGRAM ABNORMAL [None]
  - DYSPNOEA [None]
  - INTERSTITIAL LUNG DISEASE [None]
  - RASH [None]
  - URTICARIA [None]
